FAERS Safety Report 20418422 (Version 1)
Quarter: 2022Q1

REPORT INFORMATION
  Report Type: Spontaneous
  Country: US (occurrence: US)
  Receive Date: 20220202
  Receipt Date: 20220202
  Transmission Date: 20220423
  Serious: No
  Sender: FDA-Public Use
  Company Number: US-BAUSCH-BL-2022-002678

PATIENT
  Age: 61 Year
  Sex: Female

DRUGS (3)
  1. RETIN-A [Suspect]
     Active Substance: TRETINOIN
     Indication: Pigmentation disorder
     Dosage: NOW SHE JUST PUTS THE RETIN-A CREAM ON EVERY OTHER NIGHT AND MOISTURIZER IN THE MORNING EVERY DAY
     Route: 061
  2. RETIN-A [Suspect]
     Active Substance: TRETINOIN
     Indication: Skin wrinkling
  3. RETIN-A [Suspect]
     Active Substance: TRETINOIN
     Indication: Product use in unapproved indication

REACTIONS (5)
  - Application site dryness [Unknown]
  - Application site erythema [Unknown]
  - Application site irritation [Unknown]
  - Application site exfoliation [Unknown]
  - Product use in unapproved indication [Unknown]
